FAERS Safety Report 10200688 (Version 1)
Quarter: 2014Q2

REPORT INFORMATION
  Report Type: Report from Study
  Country: BR (occurrence: BR)
  Receive Date: 20140528
  Receipt Date: 20140528
  Transmission Date: 20141212
  Serious: Yes (Other)
  Sender: FDA-Public Use
  Company Number: BR-ROCHE-1406951

PATIENT
  Age: 72 Year
  Sex: Male

DRUGS (2)
  1. RANIBIZUMAB [Suspect]
     Indication: VENOUS THROMBOSIS
     Route: 050
     Dates: start: 201310
  2. RANIBIZUMAB [Suspect]
     Route: 050

REACTIONS (2)
  - Vitreous disorder [Recovering/Resolving]
  - Vitritis [Recovering/Resolving]
